FAERS Safety Report 7431835-9 (Version None)
Quarter: 2011Q2

REPORT INFORMATION
  Report Type: 
  Country: None (occurrence: None)
  Receive Date: 20110422
  Receipt Date: 20110412
  Transmission Date: 20111010
  Serious: Yes (Death, Hospitalization)
  Sender: FDA-Public Use
  Company Number: HU-ELI_LILLY_AND_COMPANY-HU201103003259

PATIENT
  Age: 70 Year
  Sex: Female

DRUGS (9)
  1. ASPIRIN [Concomitant]
  2. MEDROL [Concomitant]
  3. FORTEO [Suspect]
     Indication: OSTEOPOROSIS POSTMENOPAUSAL
     Dosage: 20 UG/80 UL, DAILY (1/D)
     Route: 058
     Dates: start: 20100412
  4. KALIUM [Concomitant]
  5. ACCUZIDE [Concomitant]
  6. CONTRAMAL [Concomitant]
  7. CALCIUM-SANDOZ F CITRON [Concomitant]
  8. CHINOTAL [Concomitant]
  9. NOACID [Concomitant]

REACTIONS (6)
  - ACUTE RESPIRATORY FAILURE [None]
  - CIRCULATORY COLLAPSE [None]
  - GASTROENTERITIS [None]
  - DEHYDRATION [None]
  - VIRAL INFECTION [None]
  - HYPOKALAEMIA [None]
